FAERS Safety Report 5026323-3 (Version None)
Quarter: 2006Q2

REPORT INFORMATION
  Report Type: 
  Country: None (occurrence: None)
  Receive Date: 20060608
  Receipt Date: 20060530
  Transmission Date: 20061013
  Serious: Yes (Other)
  Sender: FDA-Public Use
  Company Number: 2006-06-0096

PATIENT
  Age: 48 Year
  Sex: Male

DRUGS (3)
  1. ALBUTEROL SULFATE HFA [Suspect]
     Dosage: 100MCG ORAL AER INH
     Route: 055
     Dates: start: 20060110, end: 20060321
  2. BECLOMETHASONE DIPROPIONATE INHALATION SOLUTION [Suspect]
     Dosage: 800MCG INHALATION
     Route: 055
     Dates: start: 20060110, end: 20060321
  3. FLUTICASONE PROPIONATE [Concomitant]

REACTIONS (3)
  - EYE SWELLING [None]
  - SWELLING FACE [None]
  - URTICARIA [None]
